FAERS Safety Report 8344935-6 (Version None)
Quarter: 2012Q2

REPORT INFORMATION
  Report Type: 
  Country: None (occurrence: None)
  Receive Date: 20120508
  Receipt Date: 20120427
  Transmission Date: 20120825
  Serious: Yes (Life-Threatening, Hospitalization)
  Sender: FDA-Public Use
  Company Number: JP-MERCK-1204USA03546

PATIENT
  Age: 85 Year
  Sex: Female
  Weight: 38 kg

DRUGS (14)
  1. ASPIRIN [Concomitant]
     Indication: CEREBRAL INFARCTION
     Route: 048
  2. FOSAMAX [Concomitant]
     Indication: OSTEOPOROSIS
     Route: 048
  3. PURSENNID (SENNOSIDES) [Concomitant]
     Indication: CONSTIPATION
     Route: 048
  4. ADALAT CC [Suspect]
     Indication: HYPERTENSION
     Route: 048
     Dates: end: 20111026
  5. ENSURE [Concomitant]
     Dosage: FOR TON
     Route: 048
     Dates: end: 20111026
  6. ALLOPURINOL [Concomitant]
     Indication: HYPERURICAEMIA
     Route: 048
  7. HYZAAR [Suspect]
     Indication: HYPERTENSION
     Route: 048
     Dates: end: 20111026
  8. DIGOXIN [Suspect]
     Indication: ATRIAL FIBRILLATION
     Route: 048
     Dates: end: 20111026
  9. AMARYL [Concomitant]
     Dosage: THE DIVIDED DOSE FREQUENCY IS UNCERTAIN
     Route: 048
  10. OMEPRAZOLE [Concomitant]
     Route: 048
  11. AMARYL [Suspect]
     Dosage: THE DIVIDED DOSE FREQUENCY IS UNCERTAIN
     Route: 048
  12. METFORMIN HCL [Suspect]
     Dosage: THE DIVIDED DOSE FREQUENCY IS UNCERTAIN
     Route: 048
  13. ARICEPT [Concomitant]
     Indication: DEMENTIA ALZHEIMER'S TYPE
     Route: 048
  14. FERROUS CITRATE [Concomitant]
     Indication: IRON DEFICIENCY ANAEMIA
     Route: 048

REACTIONS (3)
  - HYPOGLYCAEMIA [None]
  - CARDIOGENIC SHOCK [None]
  - ALTERED STATE OF CONSCIOUSNESS [None]
